FAERS Safety Report 9954276 (Version 2)
Quarter: 2014Q1

REPORT INFORMATION
  Report Type: Report from Study
  Country: US (occurrence: US)
  Receive Date: 20140304
  Receipt Date: 20140304
  Transmission Date: 20141002
  Serious: No
  Sender: FDA-Public Use
  Company Number: US-ABBVIE-13P-163-1071886-00

PATIENT
  Sex: Female

DRUGS (1)
  1. HUMIRA [Suspect]
     Indication: HIDRADENITIS
     Route: 058

REACTIONS (3)
  - Off label use [Unknown]
  - Hidradenitis [Unknown]
  - Drug ineffective [Unknown]
